FAERS Safety Report 6858589-9 (Version None)
Quarter: 2010Q3

REPORT INFORMATION
  Report Type: 
  Country: None (occurrence: None)
  Receive Date: 20100719
  Receipt Date: 20080211
  Transmission Date: 20110219
  Serious: No
  Sender: FDA-Public Use
  Company Number: US-PFIZER INC-2008015931

PATIENT
  Sex: Female
  Weight: 90.7 kg

DRUGS (2)
  1. CHANTIX [Suspect]
     Indication: SMOKING CESSATION THERAPY
     Dates: start: 20080109, end: 20080201
  2. ORAL CONTRACEPTIVE NOS [Concomitant]

REACTIONS (4)
  - DEPRESSION [None]
  - INSOMNIA [None]
  - VOMITING [None]
  - WHITE BLOOD CELL COUNT INCREASED [None]
